FAERS Safety Report 7721818-3 (Version None)
Quarter: 2011Q3

REPORT INFORMATION
  Report Type: 
  Country: None (occurrence: None)
  Receive Date: 20110831
  Receipt Date: 20110825
  Transmission Date: 20111222
  Serious: Yes (Disabling, Other)
  Sender: FDA-Public Use
  Company Number: US-MERCK-1012USA00745

PATIENT
  Age: 60 Year
  Sex: Female
  Weight: 88 kg

DRUGS (11)
  1. FOSAMAX [Suspect]
     Indication: OSTEOPENIA
     Route: 048
     Dates: start: 20000101, end: 20101001
  2. LANTUS [Concomitant]
     Route: 065
  3. MESTINON [Concomitant]
     Route: 065
  4. HYDROCORTISONE [Concomitant]
     Indication: ADDISON'S DISEASE
     Route: 065
  5. VITAMIN D (UNSPECIFIED) [Concomitant]
     Route: 065
  6. INSULIN LISPRO [Concomitant]
     Route: 065
  7. FLORINEF [Concomitant]
     Route: 065
  8. CYANOCOBALAMIN [Concomitant]
     Route: 065
  9. CALCIUM (UNSPECIFIED) [Concomitant]
     Route: 065
  10. EVISTA [Concomitant]
     Route: 065
  11. LISINOPRIL [Concomitant]
     Route: 065

REACTIONS (2)
  - FEMUR FRACTURE [None]
  - FRACTURE DELAYED UNION [None]
